FAERS Safety Report 7459447-1 (Version None)
Quarter: 2011Q2

REPORT INFORMATION
  Report Type: 
  Country: None (occurrence: None)
  Receive Date: 20110504
  Receipt Date: 20110504
  Transmission Date: 20111010
  Serious: Yes (Life-Threatening, Hospitalization, Other)
  Sender: FDA-Public Use
  Company Number: None

PATIENT
  Age: 40 Year
  Sex: Female
  Weight: 56.6996 kg

DRUGS (2)
  1. HYDROMORPHONE HCL [Suspect]
     Dosage: 1MG ONE IV
     Route: 042
     Dates: start: 20110202, end: 20110428
  2. COMPAZINE [Suspect]
     Indication: ABDOMINAL PAIN
     Dosage: 10 MG ONCE IV
     Route: 042
     Dates: start: 20110202, end: 20110428

REACTIONS (2)
  - CARDIAC FAILURE [None]
  - DYSTONIA [None]
